FAERS Safety Report 10266225 (Version 1)
Quarter: 2014Q2

REPORT INFORMATION
  Report Type: Spontaneous
  Country: US (occurrence: US)
  Receive Date: 20140627
  Receipt Date: 20140627
  Transmission Date: 20141212
  Serious: No
  Sender: FDA-Public Use
  Company Number: US-PFIZER INC-2014175036

PATIENT
  Age: 81 Year
  Sex: Female
  Weight: 87.53 kg

DRUGS (5)
  1. NEURONTIN [Suspect]
     Indication: NEURALGIA
     Dosage: 300 MG, 1X/DAY
     Route: 048
     Dates: start: 20140601
  2. ALTACE [Concomitant]
     Dosage: UNK
  3. LIPITOR [Concomitant]
     Dosage: UNK
  4. GLUCOPHAGE [Concomitant]
     Dosage: UNK
  5. ASPIRIN [Concomitant]
     Dosage: UNK

REACTIONS (2)
  - Off label use [Unknown]
  - Alopecia [Unknown]
